FAERS Safety Report 25520123 (Version 2)
Quarter: 2025Q3

REPORT INFORMATION
  Report Type: Spontaneous
  Country: US (occurrence: US)
  Receive Date: 20250704
  Receipt Date: 20250724
  Transmission Date: 20251021
  Serious: No
  Sender: ELI LILLY AND COMPANY
  Company Number: US-ELI_LILLY_AND_COMPANY-US202507001211

PATIENT
  Age: 29 Year
  Sex: Female

DRUGS (3)
  1. TRULICITY [Suspect]
     Active Substance: DULAGLUTIDE
     Indication: Insulin resistance
     Dosage: 0.75 MG, WEEKLY (1/W)
     Route: 058
     Dates: start: 20250301
  2. TRULICITY [Suspect]
     Active Substance: DULAGLUTIDE
     Indication: Insulin resistance
     Dosage: 0.75 MG, WEEKLY (1/W)
     Route: 058
     Dates: start: 20250301
  3. TRULICITY [Suspect]
     Active Substance: DULAGLUTIDE
     Indication: Insulin resistance
     Dosage: 0.75 MG, WEEKLY (1/W)
     Route: 058
     Dates: start: 20250301

REACTIONS (4)
  - Injection site pain [Unknown]
  - Off label use [Unknown]
  - Accidental underdose [Unknown]
  - Pain [Unknown]

NARRATIVE: CASE EVENT DATE: 20250301
